FAERS Safety Report 9152679 (Version 3)
Quarter: 2013Q4

REPORT INFORMATION
  Report Type: Spontaneous
  Country: IT (occurrence: IT)
  Receive Date: 20130308
  Receipt Date: 20131015
  Transmission Date: 20140711
  Serious: Yes (Hospitalization)
  Sender: FDA-Public Use
  Company Number: PHHY2013IT022673

PATIENT
  Age: 48 Year
  Sex: Male

DRUGS (3)
  1. TASIGNA [Suspect]
     Indication: CHRONIC MYELOID LEUKAEMIA
     Dosage: 600 MG, DAILY
     Dates: start: 20120108, end: 20130225
  2. LEVOTHYROXINE [Suspect]
     Dosage: 137.5 MG, DAILY
     Route: 048
     Dates: start: 20070101
  3. SUCRAMAL [Concomitant]
     Dosage: 1 DF, DAILY
     Route: 048

REACTIONS (1)
  - Retinal detachment [Unknown]
